FAERS Safety Report 7235093-X (Version None)
Quarter: 2011Q1

REPORT INFORMATION
  Report Type: 
  Country: None (occurrence: None)
  Receive Date: 20110120
  Receipt Date: 20110113
  Transmission Date: 20110831
  Serious: Yes (Other)
  Sender: FDA-Public Use
  Company Number: BR-JNJFOC-20110104358

PATIENT
  Sex: Male

DRUGS (2)
  1. EFFEXOR [Concomitant]
     Route: 048
  2. TYLEX [Suspect]
     Indication: PRODUCT USED FOR UNKNOWN INDICATION
     Route: 048

REACTIONS (3)
  - AGITATION [None]
  - HALLUCINATION [None]
  - CONFUSIONAL STATE [None]
